FAERS Safety Report 4546723-5 (Version None)
Quarter: 2005Q1

REPORT INFORMATION
  Report Type: 
  Country: None (occurrence: None)
  Receive Date: 20050105
  Receipt Date: 20041223
  Transmission Date: 20050727
  Serious: Yes (Hospitalization, Other)
  Sender: FDA-Public Use
  Company Number: 2004117316

PATIENT
  Age: 73 Year
  Sex: Female
  Weight: 59 kg

DRUGS (4)
  1. CELEBREX [Suspect]
     Indication: ARTHRALGIA
     Dosage: 400 MG (200 MG, AS NECESSARY), ORAL
     Route: 048
     Dates: start: 20040101, end: 20040101
  2. RISEDRONATE SODIUM [Concomitant]
  3. VASERETIC [Concomitant]
  4. CALCIUM GLUCONATE [Concomitant]

REACTIONS (1)
  - HYPERTENSIVE CRISIS [None]
